FAERS Safety Report 9209002 (Version 1)
Quarter: 2013Q2

REPORT INFORMATION
  Report Type: Spontaneous
  Country: US (occurrence: US)
  Receive Date: 20130404
  Receipt Date: 20130404
  Transmission Date: 20140414
  Serious: Yes (Other)
  Sender: FDA-Public Use
  Company Number: US-SANOFI-AVENTIS-2013SA035634

PATIENT
  Age: 51 Year
  Sex: Male

DRUGS (1)
  1. APIDRA [Suspect]
     Indication: PRODUCT USED FOR UNKNOWN INDICATION
     Dosage: THERAPY START DATE - 4 MONTHS AGO
     Route: 051

REACTIONS (1)
  - Fistula [Not Recovered/Not Resolved]
